FAERS Safety Report 6493414-X (Version None)
Quarter: 2009Q4

REPORT INFORMATION
  Report Type: 
  Country: None (occurrence: None)
  Receive Date: 20091211
  Receipt Date: 20091211
  Transmission Date: 20100525
  Serious: No
  Sender: FDA-Public Use
  Company Number: None

PATIENT
  Sex: Male
  Weight: 131.8 kg

DRUGS (1)
  1. HUMIRA [Suspect]
     Indication: PSORIASIS
     Dosage: 40 MG EVERY OTHER WEEK SUBCUTANEOUS INJECTION
     Route: 058
     Dates: start: 20090401

REACTIONS (2)
  - HERPES SIMPLEX [None]
  - TRIGEMINAL NEURALGIA [None]
